FAERS Safety Report 7345009-3 (Version None)
Quarter: 2011Q1

REPORT INFORMATION
  Report Type: 
  Country: None (occurrence: None)
  Receive Date: 20110302
  Receipt Date: 20110220
  Transmission Date: 20110831
  Serious: Yes (Hospitalization, Other)
  Sender: FDA-Public Use
  Company Number: 2011016567

PATIENT
  Age: 67 Year
  Sex: Male
  Weight: 94 kg

DRUGS (69)
  1. GABAPENTIN [Concomitant]
  2. CICLOPIROX (CICLOPIROX) [Concomitant]
  3. OMEPRAZOLE [Concomitant]
  4. ALLOPURINOL [Concomitant]
  5. PIPERACILLIN AND TAZOBACTAM [Concomitant]
  6. SODIUM CHLORIDE 0.9% [Concomitant]
  7. ACETAMINOPHEN [Concomitant]
  8. DIPHENHYDRAMINE (DIPHENHYDRAMINE) [Concomitant]
  9. MYLANTA (ALUMINIUM HYDROXIDE GEL, DRIED, MAGNESIUM HYDROXIDE, SIMETICO [Concomitant]
  10. VENLAFAXINE [Concomitant]
  11. DEXAMETHASONE [Concomitant]
  12. MANNITOL [Concomitant]
  13. METFORMIN (METFORMIN) [Concomitant]
  14. DIPHENHYDRAMINE (DIPHENHYDRAMINE) [Concomitant]
  15. SODIUM POLYSTYRENE SULFONATE (SODIUM POLYSTYRENE SULFONATE) [Concomitant]
  16. KAOPECTATE (KAOLIN, PECTIN) [Concomitant]
  17. ACETAMINOPHEN/BUTALBITAL (BUTALBITAL, PARACETAMOL) [Concomitant]
  18. MULTIVITAMINS (ASCORBIC ACID, ERGOCALCIFEROL, FOLIC ACID, NICOTINAMIDE [Concomitant]
  19. PHENAZOPYRIDINE (PHENAZOPYRIDINE) [Concomitant]
  20. OXYCODONE (OXYCODONE) [Concomitant]
  21. LEVOFLOXACIN [Concomitant]
  22. PROCHLORPERAZINE MALEATE [Concomitant]
  23. GEMCITABINE [Concomitant]
  24. PAROXETINE HCL [Concomitant]
  25. MAGNESIUM OXIDE (MAGNESIUM OXIDE) [Concomitant]
  26. CELECOXIB [Concomitant]
  27. ZOFRAN [Concomitant]
  28. MONTELUKAST SODIUM [Concomitant]
  29. METOPROLOL (METOPROLOL) [Concomitant]
  30. PERCOCET [Concomitant]
  31. LIDODERM [Concomitant]
  32. LANSOPRAZOLE [Concomitant]
  33. SENOKOT [Concomitant]
  34. MONTELUKAST SODIUM [Concomitant]
  35. ALOXI [Concomitant]
  36. LORAZEPAM [Concomitant]
  37. CARBOPLATIN [Concomitant]
  38. LISINOPRIL [Concomitant]
  39. NEUPOGEN [Concomitant]
  40. RED BLOOD CELLS, CONCENTRATED (RED BLOOD CELLS, CONCENTRATED) [Concomitant]
  41. TAMSULOSIN HCL [Concomitant]
  42. RED BLOOD CELLS (RED BLOOD CELLS) [Concomitant]
  43. FUROSEMIDE [Concomitant]
  44. HEPARIN [Concomitant]
  45. LINEZOLID [Concomitant]
  46. DALTEPARIN SODIUM [Suspect]
     Indication: DEEP VEIN THROMBOSIS
     Dosage: 15000 IU, DAILY, SUBCUTANEOUS ; 15000 IU, SUBCUTANEOUS ; 15000 IU, SUBCUTANEOUS
     Route: 058
     Dates: start: 20101230, end: 20110119
  47. DALTEPARIN SODIUM [Suspect]
     Indication: DEEP VEIN THROMBOSIS
     Dosage: 15000 IU, DAILY, SUBCUTANEOUS ; 15000 IU, SUBCUTANEOUS ; 15000 IU, SUBCUTANEOUS
     Route: 058
     Dates: start: 20110202
  48. DALTEPARIN SODIUM [Suspect]
     Indication: DEEP VEIN THROMBOSIS
     Dosage: 15000 IU, DAILY, SUBCUTANEOUS ; 15000 IU, SUBCUTANEOUS ; 15000 IU, SUBCUTANEOUS
     Route: 058
     Dates: start: 20110120
  49. LORATADINE [Concomitant]
  50. EMEND [Concomitant]
  51. NAPROXEN [Concomitant]
  52. ANZEMET [Concomitant]
  53. LOPERAMIDE [Concomitant]
  54. ALBUTEROL [Concomitant]
  55. MORPHINE [Concomitant]
  56. SENOKOT [Concomitant]
  57. ALPRAZOLAM [Concomitant]
  58. ONDANSETRON [Concomitant]
  59. AMLODIPINE [Concomitant]
  60. FENTANYL [Concomitant]
  61. SODIUM BICARBONATE IN PLASTIC CONTAINER [Concomitant]
  62. DIPYRIDAMOLE [Concomitant]
  63. DUTASTERIDE (DUTASTERIDE) [Concomitant]
  64. CYCLOBENZAPRINE [Concomitant]
  65. POLYETHYLENE GLYCOL [Concomitant]
  66. TAMSULOSIN HCL [Concomitant]
  67. POTASSIUM CHLORIDE [Concomitant]
  68. FEXOFENADINE HCL [Concomitant]
  69. GUAIFENESIN [Concomitant]

REACTIONS (19)
  - DEHYDRATION [None]
  - DYSURIA [None]
  - SEPSIS [None]
  - CONDITION AGGRAVATED [None]
  - THROMBOCYTOPENIA [None]
  - LYMPHADENOPATHY [None]
  - PLEURAL EFFUSION [None]
  - HYPOKALAEMIA [None]
  - HYPOMAGNESAEMIA [None]
  - HIATUS HERNIA [None]
  - PAIN [None]
  - ANAEMIA [None]
  - CELLULITIS [None]
  - LYMPHATIC OBSTRUCTION [None]
  - CULTURE URINE POSITIVE [None]
  - ANTIBIOTIC RESISTANT STAPHYLOCOCCUS TEST POSITIVE [None]
  - RENAL FAILURE ACUTE [None]
  - HYPOPHOSPHATAEMIA [None]
  - HYDRONEPHROSIS [None]
